FAERS Safety Report 20209564 (Version 1)
Quarter: 2021Q4

REPORT INFORMATION
  Report Type: Spontaneous
  Country: AU (occurrence: AU)
  Receive Date: 20211221
  Receipt Date: 20211221
  Transmission Date: 20220304
  Serious: Yes (Death, Hospitalization, Other)
  Sender: FDA-Public Use
  Company Number: AU-SA-SAC20211025000669

PATIENT
  Age: 92 Year
  Sex: Male

DRUGS (13)
  1. CEMIPLIMAB [Suspect]
     Active Substance: CEMIPLIMAB
     Dosage: UNK
     Route: 065
     Dates: start: 20210827
  2. CEMIPLIMAB [Suspect]
     Active Substance: CEMIPLIMAB
     Dosage: UNK
     Route: 065
     Dates: start: 20210917
  3. ATORVASTATIN [Suspect]
     Active Substance: ATORVASTATIN
     Indication: Blood cholesterol
     Dosage: 20 MG, QD
     Route: 048
     Dates: start: 2018
  4. BISOPROLOL [Suspect]
     Active Substance: BISOPROLOL
     Indication: Coronary artery disease
     Dosage: 2.5 MG, QD
     Route: 048
     Dates: start: 2018
  5. ASPIRIN [Suspect]
     Active Substance: ASPIRIN
     Indication: Coronary artery disease
     Dosage: 100 MG, QD
     Route: 048
     Dates: start: 2018
  6. CANDESARTAN [Suspect]
     Active Substance: CANDESARTAN
     Indication: Hypertension
     Dosage: 8 MG, QD
     Route: 048
  7. CLOPIDOGREL BISULFATE [Suspect]
     Active Substance: CLOPIDOGREL BISULFATE
     Indication: Coronary artery disease
     Dosage: 75 MG, QD
     Route: 048
     Dates: start: 2018
  8. COLCHICINE [Suspect]
     Active Substance: COLCHICINE
     Indication: Gout
     Dosage: 500 MG, QD
     Route: 048
  9. FUROSEMIDE [Suspect]
     Active Substance: FUROSEMIDE
     Indication: Hypertension
     Dosage: 40 MG, QD
     Route: 048
  10. DEXAMETHASONE [Concomitant]
     Active Substance: DEXAMETHASONE
  11. CEFTRIAXONE [Concomitant]
     Active Substance: CEFTRIAXONE
  12. MIDAZOLAM [Concomitant]
     Active Substance: MIDAZOLAM
  13. MORPHINE [Concomitant]
     Active Substance: MORPHINE

REACTIONS (11)
  - Pneumonia [Fatal]
  - Fall [Unknown]
  - Disorientation [Unknown]
  - Cough [Unknown]
  - Fatigue [Unknown]
  - Hypoxia [Unknown]
  - Fluid intake reduced [Unknown]
  - Hyponatraemia [Unknown]
  - Tachypnoea [Unknown]
  - Hypophagia [Unknown]
  - Eye swelling [Unknown]

NARRATIVE: CASE EVENT DATE: 20210910
